FAERS Safety Report 4957528-5 (Version None)
Quarter: 2006Q1

REPORT INFORMATION
  Report Type: 
  Country: None (occurrence: None)
  Receive Date: 20060330
  Receipt Date: 20060106
  Transmission Date: 20060701
  Serious: No
  Sender: FDA-Public Use
  Company Number: US-GLAXOSMITHKLINE-A0588159A

PATIENT
  Age: 79 Year
  Sex: Female

DRUGS (3)
  1. FLOVENT [Suspect]
     Indication: DRUG USE FOR UNKNOWN INDICATION
     Dosage: 1PUFF TWICE PER DAY
     Route: 055
     Dates: start: 20060105, end: 20060105
  2. PREMARIN [Concomitant]
  3. ALBUTEROL [Concomitant]

REACTIONS (5)
  - DYSPNOEA [None]
  - FACE OEDEMA [None]
  - HYPOAESTHESIA ORAL [None]
  - PALPITATIONS [None]
  - TREMOR [None]
